FAERS Safety Report 14686670 (Version 1)
Quarter: 2018Q1

REPORT INFORMATION
  Report Type: Spontaneous
  Country: US (occurrence: US)
  Receive Date: 20180327
  Receipt Date: 20180327
  Transmission Date: 20180509
  Serious: No
  Sender: FDA-Public Use
  Company Number: US-TARO-2018TAR00007

PATIENT
  Age: 79 Year
  Sex: Female
  Weight: 51.7 kg

DRUGS (3)
  1. METRONIDAZOLE GEL USP, 1% [Suspect]
     Active Substance: METRONIDAZOLE
     Indication: ROSACEA
     Dosage: ^PEA SIZE,^ 1X/DAY
     Route: 061
     Dates: start: 201712, end: 20171225
  2. METRONIDAZOLE GEL USP, 1% [Suspect]
     Active Substance: METRONIDAZOLE
     Dosage: ^PEA SIZE,^ 1X/DAY
     Route: 061
     Dates: start: 20180101
  3. UNSPECIFIED INHALER [Concomitant]
     Active Substance: UNSPECIFIED INGREDIENT

REACTIONS (6)
  - Skin exfoliation [Not Recovered/Not Resolved]
  - Malabsorption from application site [Unknown]
  - Product quality issue [Unknown]
  - Product substitution issue [Unknown]
  - Drug ineffective [Unknown]
  - Rosacea [Not Recovered/Not Resolved]

NARRATIVE: CASE EVENT DATE: 201712
